FAERS Safety Report 4921993-X (Version None)
Quarter: 2006Q1

REPORT INFORMATION
  Report Type: 
  Country: None (occurrence: None)
  Receive Date: 20060222
  Receipt Date: 20060222
  Transmission Date: 20060701
  Serious: Yes (Hospitalization)
  Sender: FDA-Public Use
  Company Number: None

PATIENT
  Age: 67 Year
  Sex: Female

DRUGS (16)
  1. WARFARIN SODIUM [Suspect]
     Indication: DEEP VEIN THROMBOSIS
     Dosage: 3 MG PO DAILY CHRONIC
  2. WARFARIN SODIUM [Suspect]
     Indication: PULMONARY EMBOLISM
     Dosage: 3 MG PO DAILY CHRONIC
  3. LEVAQUIN [Suspect]
     Indication: BRONCHITIS
     Dosage: X PAST WEEK
  4. INSULIN [Concomitant]
  5. COUMADIN [Concomitant]
  6. O2 [Concomitant]
  7. GUAIFENESIN [Concomitant]
  8. PREVACID [Concomitant]
  9. LEXAPRO [Concomitant]
  10. ASPIRIN [Concomitant]
  11. VIT B [Concomitant]
  12. M.V.I. [Concomitant]
  13. STEROID TAPER [Concomitant]
  14. COLACE [Concomitant]
  15. CYMBALTA [Concomitant]
  16. KLONOPIN [Concomitant]

REACTIONS (4)
  - DYSPNOEA [None]
  - INTERNATIONAL NORMALISED RATIO INCREASED [None]
  - LUNG INFECTION PSEUDOMONAL [None]
  - PROTHROMBIN TIME PROLONGED [None]
